FAERS Safety Report 9925229 (Version 1)
Quarter: 2014Q1

REPORT INFORMATION
  Report Type: Spontaneous
  Country: US (occurrence: US)
  Receive Date: 20140226
  Receipt Date: 20140226
  Transmission Date: 20141002
  Serious: Yes (Hospitalization)
  Sender: FDA-Public Use
  Company Number: US-BRACCO-009576

PATIENT
  Age: 64 Year
  Sex: Male
  Weight: 107 kg

DRUGS (3)
  1. ISOVUE 370 [Suspect]
     Indication: CATHETERISATION CARDIAC
     Route: 042
     Dates: start: 20130509, end: 20130509
  2. SIMVASTATIN [Concomitant]
  3. ATENOLOL [Concomitant]

REACTIONS (5)
  - Hypotension [Recovered/Resolved]
  - Dyspnoea [Recovered/Resolved]
  - Rash generalised [Recovered/Resolved]
  - Swollen tongue [Recovered/Resolved]
  - Lip swelling [Recovered/Resolved]
